FAERS Safety Report 4862357-7 (Version None)
Quarter: 2005Q4

REPORT INFORMATION
  Report Type: 
  Country: None (occurrence: None)
  Receive Date: 20051221
  Receipt Date: 20051209
  Transmission Date: 20060501
  Serious: Yes (Other)
  Sender: FDA-Public Use
  Company Number: CA-BRISTOL-MYERS SQUIBB COMPANY-13218896

PATIENT
  Age: 68 Year
  Sex: Female

DRUGS (11)
  1. TEQUIN [Suspect]
     Route: 048
  2. METFORMIN HCL [Suspect]
  3. GLYBURIDE [Suspect]
  4. AMIODARONE HCL [Concomitant]
  5. DIGOXIN [Concomitant]
  6. FUROSEMIDE [Concomitant]
  7. LEVOTHYROXINE SODIUM [Concomitant]
  8. METHYLPREDNISOLONE [Concomitant]
  9. NORVASC [Concomitant]
  10. PREDNISONE TAB [Concomitant]
     Route: 048
  11. VASOTEC [Concomitant]

REACTIONS (1)
  - HYPOGLYCAEMIA [None]
